FAERS Safety Report 7374933-0 (Version None)
Quarter: 2011Q1

REPORT INFORMATION
  Report Type: 
  Country: None (occurrence: None)
  Receive Date: 20110325
  Receipt Date: 20110310
  Transmission Date: 20110831
  Serious: Yes (Other)
  Sender: FDA-Public Use
  Company Number: PHHY2011DE20395

PATIENT

DRUGS (1)
  1. RASILEZ [Suspect]
     Dosage: UNK

REACTIONS (1)
  - HAEMORRHOIDS [None]
